FAERS Safety Report 22256333 (Version 1)
Quarter: 2023Q2

REPORT INFORMATION
  Report Type: Spontaneous
  Country: DE (occurrence: DE)
  Receive Date: 20230426
  Receipt Date: 20230426
  Transmission Date: 20230722
  Serious: Yes (Hospitalization, Other)
  Sender: FDA-Public Use
  Company Number: DE-ABBVIE-4742291

PATIENT
  Age: 69 Year
  Sex: Male

DRUGS (9)
  1. VENETOCLAX [Suspect]
     Active Substance: VENETOCLAX
     Indication: Acute myeloid leukaemia
     Dosage: FREQUENCY TEXT: DAY 1-7 PER 28 DAY CYCLE
     Route: 048
     Dates: start: 20221216
  2. VENETOCLAX [Suspect]
     Active Substance: VENETOCLAX
     Indication: Acute myeloid leukaemia
     Dosage: 2ND CYCLE ON 1-7 DAYS
     Route: 048
     Dates: start: 20230124, end: 20230131
  3. VENETOCLAX [Suspect]
     Active Substance: VENETOCLAX
     Indication: Acute myeloid leukaemia
     Dosage: 3RD CYCLE ON 1-7 DAYS
     Route: 048
     Dates: start: 20230220
  4. AZACITIDINE [Concomitant]
     Active Substance: AZACITIDINE
     Indication: Acute myeloid leukaemia
     Dosage: FIRST CYCLE ON 1-7 DAYS
     Route: 058
     Dates: start: 20221216
  5. AZACITIDINE [Concomitant]
     Active Substance: AZACITIDINE
     Indication: Acute myeloid leukaemia
     Dosage: 2ND CYCLE ON 1-7 DAYS
     Route: 058
     Dates: start: 20230124, end: 20230131
  6. AZACITIDINE [Concomitant]
     Active Substance: AZACITIDINE
     Indication: Acute myeloid leukaemia
     Dosage: 3RD CYCLE ON 1-7 DAYS
     Route: 058
     Dates: start: 20230220
  7. VCD [Concomitant]
     Indication: Product used for unknown indication
     Dosage: 4 CYCLES
     Dates: start: 2017
  8. MELPHALAN [Concomitant]
     Active Substance: MELPHALAN
     Indication: Product used for unknown indication
     Dosage: HIGH-DOSE
     Dates: start: 2018
  9. REVLIMID [Concomitant]
     Active Substance: LENALIDOMIDE
     Indication: Product used for unknown indication
     Dosage: DOSE:10/15 MG
     Dates: start: 201810, end: 202109

REACTIONS (14)
  - Infection [Recovered/Resolved]
  - Vascular device infection [Unknown]
  - General physical health deterioration [Unknown]
  - Myelodysplastic syndrome [Unknown]
  - Acute kidney injury [Recovered/Resolved]
  - Myelosuppression [Recovered/Resolved]
  - Anaemia [Unknown]
  - Bacterial sepsis [Unknown]
  - Pancytopenia [Unknown]
  - Acute kidney injury [Unknown]
  - Bone marrow failure [Recovered/Resolved]
  - Thrombocytopenia [Unknown]
  - Cholecystitis [Unknown]
  - Gallbladder rupture [Unknown]

NARRATIVE: CASE EVENT DATE: 20230110
